FAERS Safety Report 6992233-5 (Version None)
Quarter: 2010Q3

REPORT INFORMATION
  Report Type: 
  Country: None (occurrence: None)
  Receive Date: 20100917
  Receipt Date: 20100913
  Transmission Date: 20110219
  Serious: Yes (Death)
  Sender: FDA-Public Use
  Company Number: GB-ASTRAZENECA-2010SE42933

PATIENT
  Age: 49 Year
  Sex: Male
  Weight: 79 kg

DRUGS (3)
  1. QUETIAPINE [Suspect]
     Route: 048
  2. CLOZAPINE [Suspect]
  3. ORPHENADRINE CITRATE [Suspect]

REACTIONS (3)
  - ACUTE HEPATIC FAILURE [None]
  - GASTROINTESTINAL HYPOMOTILITY [None]
  - LIVER INJURY [None]
